FAERS Safety Report 9963983 (Version 2)
Quarter: 2014Q2

REPORT INFORMATION
  Report Type: Spontaneous
  Country: US (occurrence: US)
  Receive Date: 20140305
  Receipt Date: 20140421
  Transmission Date: 20141212
  Serious: No
  Sender: FDA-Public Use
  Company Number: US-B.I. PHARMACEUTICALS,INC./RIDGEFIELD-2014-BI-08090BP

PATIENT
  Age: 67 Year
  Sex: Male
  Weight: 93 kg

DRUGS (10)
  1. SPIRIVA [Suspect]
     Indication: CHRONIC OBSTRUCTIVE PULMONARY DISEASE
     Dosage: 18 MCG
     Route: 055
     Dates: start: 201401, end: 201401
  2. SPIRIVA [Suspect]
     Dosage: 18 MCG
     Route: 055
     Dates: start: 201403
  3. TYLENOL WITH CODEINE [Concomitant]
     Route: 048
  4. TYLENOL [Concomitant]
     Indication: ARTHRITIS
     Route: 048
  5. ASPIRIN [Concomitant]
     Route: 048
  6. VOLTAREN [Concomitant]
     Route: 048
  7. ASA [Concomitant]
     Route: 065
  8. DICLOFENAC SODIUM [Concomitant]
     Route: 065
  9. SPIRIVA [Concomitant]
     Route: 065
  10. TYLENOL ARTHRTIS [Concomitant]
     Route: 065

REACTIONS (3)
  - Arthralgia [Not Recovered/Not Resolved]
  - Arthralgia [Not Recovered/Not Resolved]
  - Muscle spasms [Recovered/Resolved]
